FAERS Safety Report 5272267-1 (Version None)
Quarter: 2007Q1

REPORT INFORMATION
  Report Type: 
  Country: None (occurrence: None)
  Receive Date: 20070322
  Receipt Date: 20070309
  Transmission Date: 20070707
  Serious: Yes (Other)
  Sender: FDA-Public Use
  Company Number: PHRM2007FR01050

PATIENT
  Age: 68 Year
  Sex: Female

DRUGS (2)
  1. AMLODIPINE [Concomitant]
  2. COTAREG [Suspect]
     Route: 048
     Dates: start: 20050217, end: 20060529

REACTIONS (4)
  - PRURITUS [None]
  - RASH [None]
  - TOXIC SKIN ERUPTION [None]
  - VASCULITIS [None]
